FAERS Safety Report 9542734 (Version 1)
Quarter: 2013Q2

REPORT INFORMATION
  Report Type: Spontaneous
  Country: US (occurrence: None)
  Receive Date: 20130524
  Receipt Date: 20130524
  Transmission Date: 20140414
  Serious: Yes (Other)
  Sender: FDA-Public Use
  Company Number: PHEH2013US000536

PATIENT
  Age: 51 Year
  Sex: Male
  Weight: 102.9 kg

DRUGS (3)
  1. GILENYA [Suspect]
     Indication: MULTIPLE SCLEROSIS
     Route: 048
     Dates: start: 20110922
  2. RITALIN (METHYLPHENIDATE HYDROCHLORIDE) [Concomitant]
  3. MECLIZINE (MECLOZINE) [Concomitant]

REACTIONS (2)
  - Bronchitis [None]
  - Influenza [None]
